FAERS Safety Report 18055363 (Version 2)
Quarter: 2020Q3

REPORT INFORMATION
  Report Type: Spontaneous
  Country: US (occurrence: US)
  Receive Date: 20200722
  Receipt Date: 20200728
  Transmission Date: 20201103
  Serious: Yes (Other)
  Sender: FDA-Public Use
  Company Number: US-PFIZER INC-2020278273

PATIENT
  Age: 12 Year
  Sex: Female

DRUGS (5)
  1. ETOPOSIDE. [Suspect]
     Active Substance: ETOPOSIDE
     Indication: NUT MIDLINE CARCINOMA
     Dosage: UNK, CYCLIC (EVERY 7 CYCLIC)
  2. IFOSFAMIDE. [Suspect]
     Active Substance: IFOSFAMIDE
     Indication: NUT MIDLINE CARCINOMA
     Dosage: UNK, CYCLIC (EVERY 7 CYCLIC)
  3. CYCLOPHOSPHAMIDE. [Suspect]
     Active Substance: CYCLOPHOSPHAMIDE
     Indication: NUT MIDLINE CARCINOMA
     Dosage: UNK, CYCLIC (EVERY 7 CYCLIC)
  4. VINCRISTINE SULFATE. [Suspect]
     Active Substance: VINCRISTINE SULFATE
     Indication: NUT MIDLINE CARCINOMA
     Dosage: UNK, CYCLIC (EVERY 7 CYCLIC)
  5. DOXORUBICIN HCL [Suspect]
     Active Substance: DOXORUBICIN HYDROCHLORIDE
     Indication: NUT MIDLINE CARCINOMA
     Dosage: UNK, CYCLIC (EVERY 7 CYCLIC)

REACTIONS (7)
  - Hypothyroidism [Unknown]
  - Epistaxis [Unknown]
  - Paranasal sinus mucosal hypertrophy [Unknown]
  - Product use in unapproved indication [Unknown]
  - Osteoporosis [Unknown]
  - Premature menopause [Unknown]
  - Off label use [Unknown]
